FAERS Safety Report 5073619-5 (Version None)
Quarter: 2006Q3

REPORT INFORMATION
  Report Type: 
  Country: None (occurrence: None)
  Receive Date: 20060803
  Receipt Date: 20060725
  Transmission Date: 20061208
  Serious: Yes (Other)
  Sender: FDA-Public Use
  Company Number: HQWYE540825MAY06

PATIENT
  Age: 68 Year
  Sex: Male
  Weight: 60.38 kg

DRUGS (2)
  1. MYLOTARG [Suspect]
     Indication: ACUTE MYELOID LEUKAEMIA
     Dosage: INTRAVENOUS
     Route: 042
     Dates: start: 20060224, end: 20060304
  2. CYTARABINE [Concomitant]

REACTIONS (2)
  - HEPATIC VEIN THROMBOSIS [None]
  - VENOOCCLUSIVE LIVER DISEASE [None]
